FAERS Safety Report 7910139-1 (Version None)
Quarter: 2011Q4

REPORT INFORMATION
  Report Type: 
  Country: None (occurrence: None)
  Receive Date: 20111111
  Receipt Date: 20111101
  Transmission Date: 20120403
  Serious: Yes (Hospitalization, Disabling)
  Sender: FDA-Public Use
  Company Number: PHHO2011BR018416

PATIENT
  Sex: Female
  Weight: 62 kg

DRUGS (5)
  1. BLINDED NO TREATMENT RECEIVED [Suspect]
     Indication: BREAST CANCER
     Dosage: DOUBLE BLINDED
     Dates: start: 20111004, end: 20111025
  2. PACLITAXEL [Suspect]
     Indication: BREAST CANCER
     Dosage: 126.4 MG, QW
     Dates: start: 20111004
  3. BLINDED PLACEBO [Suspect]
     Indication: BREAST CANCER
     Dosage: DOUBLE BLINDED
     Dates: start: 20111004, end: 20111025
  4. AFINITOR [Suspect]
     Indication: BREAST CANCER
     Dosage: DOUBLE BLINDED
     Dates: start: 20111004, end: 20111025
  5. COMPARATOR TRASTUZUMAB [Suspect]
     Indication: BREAST CANCER
     Dosage: 124 MG, QW
     Dates: start: 20111004

REACTIONS (2)
  - DIARRHOEA [None]
  - HYPOKALAEMIA [None]
